FAERS Safety Report 19879776 (Version 1)
Quarter: 2021Q3

REPORT INFORMATION
  Report Type: Spontaneous
  Country: MX (occurrence: MX)
  Receive Date: 20210924
  Receipt Date: 20210924
  Transmission Date: 20211014
  Serious: Yes (Life-Threatening, Other)
  Sender: FDA-Public Use
  Company Number: MX-ALVOGEN-2021-ALVOGEN-117577

PATIENT
  Age: 8 Year
  Sex: Male

DRUGS (4)
  1. SOMATROPIN. [Concomitant]
     Active Substance: SOMATROPIN
     Indication: ILL-DEFINED DISORDER
     Dosage: 10 MG / 1.5 ML SOLUTION SUBCUTANEOUSLY 1 MG ONCE A DAY
     Dates: start: 20210901
  2. LEVOCETIRIZINE DIHYDROCHLORIDE. [Concomitant]
     Active Substance: LEVOCETIRIZINE DIHYDROCHLORIDE
     Indication: HYPERSENSITIVITY
     Dosage: SUSPENSION OF 5 ML DAILY
  3. BECLOMETASONE DIPROPIONATE/FORMOTEROL FUMARATE [Concomitant]
     Active Substance: BECLOMETHASONE DIPROPIONATE\FORMOTEROL FUMARATE
     Indication: PRODUCT USED FOR UNKNOWN INDICATION
     Dosage: 2 SHOTS EVERY 24 HOURS
  4. ATENOLOL. [Suspect]
     Active Substance: ATENOLOL
     Indication: PRODUCT USED FOR UNKNOWN INDICATION
     Route: 048

REACTIONS (4)
  - Wrong technique in product usage process [Unknown]
  - Asphyxia [Unknown]
  - Dyspnoea [Unknown]
  - Cardiac disorder [Unknown]

NARRATIVE: CASE EVENT DATE: 20210907
